FAERS Safety Report 11723644 (Version 3)
Quarter: 2016Q2

REPORT INFORMATION
  Report Type: Spontaneous
  Country: AR (occurrence: AR)
  Receive Date: 20151111
  Receipt Date: 20160524
  Transmission Date: 20160815
  Serious: Yes (Other)
  Sender: FDA-Public Use
  Company Number: AR-BIOMARINAP-AR-2015-107978

PATIENT
  Age: 29 Year
  Sex: Female
  Weight: 22.1 kg

DRUGS (1)
  1. VIMIZIM [Suspect]
     Active Substance: ELOSULFASE ALFA
     Indication: MUCOPOLYSACCHARIDOSIS IV
     Dosage: 40 MG, QW
     Route: 042
     Dates: start: 20150826

REACTIONS (2)
  - Pyrexia [Not Recovered/Not Resolved]
  - Sinus tachycardia [Recovered/Resolved]

NARRATIVE: CASE EVENT DATE: 20150826
